FAERS Safety Report 5421979-5 (Version None)
Quarter: 2007Q3

REPORT INFORMATION
  Report Type: 
  Country: None (occurrence: None)
  Receive Date: 20070822
  Receipt Date: 20070820
  Transmission Date: 20080115
  Serious: Yes (Other)
  Sender: FDA-Public Use
  Company Number: PHNU2007DE02141

PATIENT
  Age: 70 Year
  Sex: Female

DRUGS (4)
  1. PROVASIN TAB [Suspect]
     Indication: HYPERTENSION
     Route: 048
  2. PROVASIN TAB [Suspect]
     Route: 048
     Dates: start: 20070201
  3. PROVAS COMP [Concomitant]
     Dates: start: 20070201
  4. VERAPAMIL [Suspect]
     Dosage: 240 MG/DAY

REACTIONS (8)
  - BLOOD PRESSURE INADEQUATELY CONTROLLED [None]
  - CARDIAC DISORDER [None]
  - DRUG INTERACTION [None]
  - DYSPNOEA [None]
  - EYE OPERATION [None]
  - HEART RATE DECREASED [None]
  - MALAISE [None]
  - SENSATION OF HEAVINESS [None]
